FAERS Safety Report 7726630-7 (Version None)
Quarter: 2011Q3

REPORT INFORMATION
  Report Type: 
  Country: None (occurrence: None)
  Receive Date: 20110902
  Receipt Date: 20110825
  Transmission Date: 20111222
  Serious: Yes (Hospitalization, Disabling)
  Sender: FDA-Public Use
  Company Number: PHHO2011DE14486

PATIENT
  Sex: Female
  Weight: 67 kg

DRUGS (5)
  1. OLMESARTAN MEDOXOMIL [Concomitant]
     Indication: HYPERTENSION
  2. ASPIRIN [Concomitant]
  3. TASIGNA [Suspect]
     Indication: GASTROINTESTINAL STROMAL TUMOUR
     Dosage: 400 MG, BID
     Route: 048
     Dates: start: 20110419, end: 20110801
  4. FENTANYL [Concomitant]
     Indication: PAIN
  5. LYRICA [Concomitant]
     Indication: PAIN

REACTIONS (2)
  - PULMONARY EMBOLISM [None]
  - INFECTED SKIN ULCER [None]
